FAERS Safety Report 19746235 (Version 2)
Quarter: 2021Q3

REPORT INFORMATION
  Report Type: Spontaneous
  Country: US (occurrence: US)
  Receive Date: 20210826
  Receipt Date: 20210904
  Transmission Date: 20211014
  Serious: Yes (Hospitalization)
  Sender: FDA-Public Use
  Company Number: US-UNITED THERAPEUTICS-UNT-2021-013465

PATIENT
  Age: 67 Year
  Sex: Female
  Weight: 103.4 kg

DRUGS (7)
  1. WARFARIN SODIUM. [Suspect]
     Active Substance: WARFARIN SODIUM
     Indication: PRODUCT USED FOR UNKNOWN INDICATION
     Dosage: UNK
     Route: 065
  2. UPTRAVI [Suspect]
     Active Substance: SELEXIPAG
     Dosage: 400 ?G, BID
     Route: 048
     Dates: start: 2021, end: 202108
  3. TADALAFIL. [Concomitant]
     Active Substance: TADALAFIL
     Indication: PRODUCT USED FOR UNKNOWN INDICATION
     Dosage: UNK
     Route: 065
  4. UPTRAVI [Suspect]
     Active Substance: SELEXIPAG
     Dosage: 200 ?G, BID
     Route: 048
     Dates: start: 20210716, end: 2021
  5. TYVASO [Suspect]
     Active Substance: TREPROSTINIL
     Indication: PULMONARY ARTERIAL HYPERTENSION
     Dosage: UNK
     Dates: start: 20210119
  6. TYVASO [Suspect]
     Active Substance: TREPROSTINIL
     Dosage: 18?54 ?G, QID
     Dates: start: 2021
  7. UPTRAVI [Suspect]
     Active Substance: SELEXIPAG
     Indication: PULMONARY ARTERIAL HYPERTENSION
     Dosage: 300 ?G, BID
     Route: 048
     Dates: start: 20210716, end: 2021

REACTIONS (17)
  - Myalgia [Unknown]
  - Balance disorder [Unknown]
  - Dysstasia [Unknown]
  - Pain [Unknown]
  - Limb discomfort [Unknown]
  - Flatulence [Unknown]
  - Dyspnoea exertional [Unknown]
  - Arthralgia [Unknown]
  - Pruritus [Unknown]
  - Decreased appetite [Unknown]
  - Fluid overload [Unknown]
  - Diarrhoea [Unknown]
  - Insomnia [Unknown]
  - Dyspnoea [Unknown]
  - Haemorrhoidal haemorrhage [Unknown]
  - Nausea [Unknown]
  - Contusion [Unknown]

NARRATIVE: CASE EVENT DATE: 2021
